FAERS Safety Report 24223600 (Version 1)
Quarter: 2024Q3

REPORT INFORMATION
  Report Type: Spontaneous
  Country: US (occurrence: None)
  Receive Date: 20240819
  Receipt Date: 20240819
  Transmission Date: 20241016
  Serious: No
  Sender: Public
  Company Number: None

PATIENT
  Age: 47 Year
  Sex: Female
  Weight: 83.46 kg

DRUGS (1)
  1. ADALIMUMAB-ADAZ [Suspect]
     Active Substance: ADALIMUMAB-ADAZ
     Indication: Rheumatoid arthritis
     Dosage: INJECT 40MG SUBCUTANEOUSLY EVERY 2 WEEKS IN THE ABDOMENOR THIGH  AS DIRECTED.    ?
     Route: 058
     Dates: start: 202406

REACTIONS (2)
  - COVID-19 [None]
  - Therapy interrupted [None]
